FAERS Safety Report 5151318-9 (Version None)
Quarter: 2006Q4

REPORT INFORMATION
  Report Type: 
  Country: None (occurrence: None)
  Receive Date: 20061115
  Receipt Date: 20060224
  Transmission Date: 20070319
  Serious: Yes (Hospitalization)
  Sender: FDA-Public Use
  Company Number: JP-GLAXOSMITHKLINE-B0413618A

PATIENT
  Age: 45 Year
  Sex: Male
  Weight: 57 kg

DRUGS (4)
  1. BUPROPION HCL [Suspect]
     Indication: DEPRESSION
     Route: 048
     Dates: start: 20060204, end: 20060223
  2. MYSLEE [Concomitant]
     Indication: INSOMNIA
     Route: 048
     Dates: start: 20060203
  3. LAC B [Concomitant]
     Indication: ENTEROCOLITIS
     Dosage: 3G PER DAY
     Route: 048
     Dates: start: 20060215, end: 20060224
  4. ALBUMIN TANNATE [Concomitant]
     Indication: ENTEROCOLITIS
     Dosage: 4.5G PER DAY
     Route: 048
     Dates: start: 20060215, end: 20060224

REACTIONS (8)
  - BLOOD LACTATE DEHYDROGENASE INCREASED [None]
  - C-REACTIVE PROTEIN INCREASED [None]
  - DRUG ERUPTION [None]
  - HEPATIC ENZYME INCREASED [None]
  - PRURITUS [None]
  - RASH [None]
  - URTICARIA [None]
  - WHITE BLOOD CELL COUNT INCREASED [None]
